FAERS Safety Report 11005339 (Version 8)
Quarter: 2015Q3

REPORT INFORMATION
  Report Type: Spontaneous
  Country: JP (occurrence: JP)
  Receive Date: 20150409
  Receipt Date: 20150706
  Transmission Date: 20151125
  Serious: Yes (Life-Threatening, Hospitalization, Other)
  Sender: FDA-Public Use
  Company Number: JP-PFIZER INC-2015094466

PATIENT
  Age: 33 Year
  Sex: Male

DRUGS (2)
  1. BOSULIF [Suspect]
     Active Substance: BOSUTINIB MONOHYDRATE
     Dosage: UNK
     Route: 048
     Dates: start: 20150404
  2. BOSULIF [Suspect]
     Active Substance: BOSUTINIB MONOHYDRATE
     Indication: CHRONIC MYELOID LEUKAEMIA
     Dosage: UNK
     Route: 048
     Dates: start: 20150310, end: 2015

REACTIONS (10)
  - Pyrexia [Recovered/Resolved]
  - Gamma-glutamyltransferase increased [Not Recovered/Not Resolved]
  - Pharyngitis [Recovered/Resolved]
  - Cytomegalovirus enteritis [Recovered/Resolved]
  - Dental caries [Not Recovered/Not Resolved]
  - Diarrhoea [Recovered/Resolved]
  - Transaminases increased [Not Recovered/Not Resolved]
  - C-reactive protein increased [Unknown]
  - Pancytopenia [Not Recovered/Not Resolved]
  - Pyrexia [Recovered/Resolved]

NARRATIVE: CASE EVENT DATE: 2015
